APPROVED DRUG PRODUCT: CLINDAMYCIN PHOSPHATE
Active Ingredient: CLINDAMYCIN PHOSPHATE
Strength: EQ 1% BASE
Dosage Form/Route: SOLUTION;TOPICAL
Application: A209914 | Product #001 | TE Code: AT
Applicant: ENCUBE ETHICALS PVT LTD
Approved: Jan 28, 2019 | RLD: No | RS: No | Type: RX